FAERS Safety Report 5723511-5 (Version None)
Quarter: 2008Q2

REPORT INFORMATION
  Report Type: 
  Country: None (occurrence: None)
  Receive Date: 20080430
  Receipt Date: 20080421
  Transmission Date: 20081010
  Serious: Yes (Death)
  Sender: FDA-Public Use
  Company Number: FR-TEVA-170465ISR

PATIENT
  Sex: Female

DRUGS (4)
  1. METHOTREXATE [Suspect]
     Indication: T-CELL LYMPHOMA
     Route: 042
     Dates: start: 20080131, end: 20080131
  2. METHOTREXATE BELLON [Suspect]
     Indication: T-CELL LYMPHOMA
     Route: 037
     Dates: start: 20080130, end: 20080130
  3. CYTARABINE [Suspect]
     Indication: T-CELL LYMPHOMA
     Route: 042
     Dates: start: 20080203, end: 20080204
  4. CYTARABINE [Suspect]
     Route: 037
     Dates: start: 20080130, end: 20080130

REACTIONS (3)
  - CONVULSION [None]
  - ENCEPHALOPATHY [None]
  - PERIPHERAL MOTOR NEUROPATHY [None]
